FAERS Safety Report 7039725-0 (Version None)
Quarter: 2010Q3

REPORT INFORMATION
  Report Type: 
  Country: None (occurrence: None)
  Receive Date: 20100929
  Receipt Date: 20100802
  Transmission Date: 20110219
  Serious: No
  Sender: FDA-Public Use
  Company Number: US-WYE-H16679410

PATIENT
  Age: 45 Year
  Sex: Female
  Weight: 108.96 kg

DRUGS (2)
  1. PRISTIQ [Suspect]
     Indication: AGGRESSION
     Dosage: 50 MG 1X PER 1 DAY, ORAL
     Route: 048
  2. BENICAR [Concomitant]

REACTIONS (2)
  - DRUG WITHDRAWAL SYNDROME [None]
  - VERTIGO [None]
